FAERS Safety Report 21129012 (Version 1)
Quarter: 2022Q3

REPORT INFORMATION
  Report Type: Other
  Country: CA (occurrence: None)
  Receive Date: 20220725
  Receipt Date: 20220725
  Transmission Date: 20221027
  Serious: Yes (Other)
  Sender: FDA-Public Use
  Company Number: CA-ROCHE-3145506

PATIENT
  Age: 66 Year
  Sex: Male

DRUGS (11)
  1. ACTEMRA [Suspect]
     Active Substance: TOCILIZUMAB
     Indication: Rheumatoid arthritis
     Route: 058
     Dates: start: 20220609
  2. ACTONEL [Concomitant]
     Active Substance: RISEDRONATE SODIUM
  3. ATORVASTATIN [Concomitant]
     Active Substance: ATORVASTATIN
  4. CHLORTHALIDONE [Concomitant]
     Active Substance: CHLORTHALIDONE
  5. FINASTERIDE [Concomitant]
     Active Substance: FINASTERIDE
  6. HYDROXYCHLOROQUINE [Concomitant]
     Active Substance: HYDROXYCHLOROQUINE
  7. ASPIRIN [Concomitant]
     Active Substance: ASPIRIN
  8. OLMESARTAN [Concomitant]
     Active Substance: OLMESARTAN
  9. PREDNISONE [Concomitant]
     Active Substance: PREDNISONE
  10. TAMSULOSIN [Concomitant]
     Active Substance: TAMSULOSIN
  11. TYLENOL ARTHRITIS PAIN [Concomitant]
     Active Substance: ACETAMINOPHEN

REACTIONS (2)
  - Thrombosis [Unknown]
  - Off label use [Unknown]

NARRATIVE: CASE EVENT DATE: 20220712
